FAERS Safety Report 14482284 (Version 1)
Quarter: 2018Q1

REPORT INFORMATION
  Report Type: Spontaneous
  Country: US (occurrence: US)
  Receive Date: 20180202
  Receipt Date: 20180202
  Transmission Date: 20180509
  Serious: No
  Sender: FDA-Public Use
  Company Number: None

PATIENT
  Age: 30 Year
  Sex: Female

DRUGS (1)
  1. ILARIS [Suspect]
     Active Substance: CANAKINUMAB
     Indication: RHEUMATOID ARTHRITIS
     Dosage: 150MG Q 4 WEEKS SQ
     Route: 058
     Dates: start: 20180102

REACTIONS (3)
  - Diarrhoea [None]
  - Gastrointestinal pain [None]
  - Nausea [None]

NARRATIVE: CASE EVENT DATE: 20180114
